FAERS Safety Report 11272180 (Version 2)
Quarter: 2015Q3

REPORT INFORMATION
  Report Type: Spontaneous
  Country: GB (occurrence: None)
  Receive Date: 20150713
  Receipt Date: 20150824
  Transmission Date: 20151125
  Serious: Yes (Other)
  Sender: FDA-Public Use
  Company Number: KAD201507-002080

PATIENT
  Age: 70 Year
  Sex: Female
  Weight: 83.8 kg

DRUGS (8)
  1. BISOPROLOL (BISOPROLOL) [Concomitant]
     Active Substance: BISOPROLOL
  2. CLOPIDOGREL [Concomitant]
     Active Substance: CLOPIDOGREL BISULFATE
  3. CETIRIZINE (CETIRIZINE) [Concomitant]
     Active Substance: CETIRIZINE HYDROCHLORIDE
  4. RIBAVIRIN (RIBAVIRIN) [Suspect]
     Active Substance: RIBAVIRIN
     Indication: HEPATITIS C
  5. SPIRONOLACTONE (SPIRONOLACTONE) [Suspect]
     Active Substance: SPIRONOLACTONE
     Route: 048
     Dates: start: 20150514
  6. EXVIERA (DASABUVIR/ABT-333) [Suspect]
     Active Substance: DASABUVIR
     Indication: HEPATITIS C
     Route: 048
     Dates: start: 20150610, end: 20150617
  7. VIEKIRA PAK [Suspect]
     Active Substance: DASABUVIR\OMBITASVIR\PARITAPREVIR\RITONAVIR
     Indication: HEPATITIS C
     Route: 048
     Dates: start: 20150610, end: 20150617
  8. LEVOTHYROXINE (LEVOTHYROXINE) [Concomitant]
     Active Substance: LEVOTHYROXINE

REACTIONS (6)
  - Hypersensitivity [None]
  - Renal impairment [None]
  - Glomerular filtration rate decreased [None]
  - Malaise [None]
  - Cardiac arrest [None]
  - Rash generalised [None]
